FAERS Safety Report 10309351 (Version 1)
Quarter: 2014Q3

REPORT INFORMATION
  Report Type: Spontaneous
  Country: US (occurrence: None)
  Receive Date: 20140714
  Receipt Date: 20140714
  Transmission Date: 20150326
  Serious: Yes (Other)
  Sender: FDA-Public Use
  Company Number: 2014SUP00017

PATIENT
  Age: 21 Year
  Sex: Female
  Weight: 54 kg

DRUGS (8)
  1. OXTELLAR XR [Suspect]
     Active Substance: OXCARBAZEPINE
     Indication: CONVULSION
     Route: 048
     Dates: start: 20140525, end: 20140622
  2. REMERON [Concomitant]
     Active Substance: MIRTAZAPINE
  3. TRILEPTAL [Suspect]
     Active Substance: OXCARBAZEPINE
     Indication: CONVULSION
     Dates: start: 20140613
  4. UNSPECIFIED VITAMIN [Concomitant]
  5. LATUDA [Concomitant]
     Active Substance: LURASIDONE HYDROCHLORIDE
  6. CLARITIN [Concomitant]
     Active Substance: LORATADINE
  7. OXTELLAR XR [Suspect]
     Active Substance: OXCARBAZEPINE
     Indication: CONVULSION
     Route: 048
     Dates: start: 20140403, end: 20140516
  8. ONFI [Concomitant]
     Active Substance: CLOBAZAM

REACTIONS (10)
  - Depressed mood [None]
  - Self-medication [None]
  - Dizziness [None]
  - Convulsion [None]
  - Fatigue [None]
  - Hypophagia [None]
  - Nausea [None]
  - Incorrect dose administered [None]
  - Weight decreased [None]
  - Hypersomnia [None]

NARRATIVE: CASE EVENT DATE: 201404
